FAERS Safety Report 13298442 (Version 2)
Quarter: 2017Q1

REPORT INFORMATION
  Report Type: Spontaneous
  Country: US (occurrence: US)
  Receive Date: 20170306
  Receipt Date: 20170309
  Transmission Date: 20170428
  Serious: No
  Sender: FDA-Public Use
  Company Number: US-BAYER-2017-042898

PATIENT
  Age: 73 Year
  Sex: Female
  Weight: 124.72 kg

DRUGS (6)
  1. COUMADIN [Concomitant]
     Active Substance: WARFARIN SODIUM
  2. CARAFATE [Concomitant]
     Active Substance: SUCRALFATE
  3. OMEPRAZOLE. [Concomitant]
     Active Substance: OMEPRAZOLE
  4. MIRALAX [Suspect]
     Active Substance: POLYETHYLENE GLYCOL 3350
     Indication: GASTROINTESTINAL DISORDER
     Dosage: 17.9 OUNCES IN FLUID
     Route: 048
     Dates: end: 201702
  5. MIRALAX [Suspect]
     Active Substance: POLYETHYLENE GLYCOL 3350
     Indication: COLONOSCOPY
  6. MIRALAX [Suspect]
     Active Substance: POLYETHYLENE GLYCOL 3350
     Indication: CONSTIPATION
     Dosage: 17G IN 8 OZ OF WATER
     Route: 048
     Dates: start: 2007

REACTIONS (4)
  - Malaise [Unknown]
  - Toxicity to various agents [Unknown]
  - Condition aggravated [Unknown]
  - Product use issue [Unknown]
